FAERS Safety Report 6002617-X (Version None)
Quarter: 2008Q4

REPORT INFORMATION
  Report Type: 
  Country: None (occurrence: None)
  Receive Date: 20081215
  Receipt Date: 20071112
  Transmission Date: 20090506
  Serious: No
  Sender: FDA-Public Use
  Company Number: US-AMGEN-KDL252222

PATIENT
  Sex: Female

DRUGS (1)
  1. ENBREL [Suspect]
     Indication: RHEUMATOID ARTHRITIS
     Route: 058
     Dates: start: 19990101, end: 20000101

REACTIONS (6)
  - DRUG INEFFECTIVE [None]
  - HEART RATE INCREASED [None]
  - PHARYNGEAL OEDEMA [None]
  - RASH GENERALISED [None]
  - RESPIRATORY RATE INCREASED [None]
  - RHEUMATOID ARTHRITIS [None]
